FAERS Safety Report 4951763-8 (Version None)
Quarter: 2006Q1

REPORT INFORMATION
  Report Type: 
  Country: None (occurrence: None)
  Receive Date: 20060323
  Receipt Date: 20060314
  Transmission Date: 20060701
  Serious: Yes (Other)
  Sender: FDA-Public Use
  Company Number: PHBS2006BR04052

PATIENT
  Age: 27 Year
  Sex: Female
  Weight: 71 kg

DRUGS (2)
  1. METHERGINE [Suspect]
     Indication: UTERINE HAEMORRHAGE
     Dosage: 0.125 MG, QD
     Route: 048
  2. METHERGINE [Suspect]
     Dosage: 10 DF, ONCE/SINGLE
     Route: 048
     Dates: start: 20060314, end: 20060314

REACTIONS (3)
  - DEPRESSED MOOD [None]
  - INTENTIONAL OVERDOSE [None]
  - NERVOUSNESS [None]
